FAERS Safety Report 5759086-4 (Version None)
Quarter: 2008Q2

REPORT INFORMATION
  Report Type: 
  Country: None (occurrence: None)
  Receive Date: 20080604
  Receipt Date: 20080527
  Transmission Date: 20081010
  Serious: Yes (Death)
  Sender: FDA-Public Use
  Company Number: US-ELI_LILLY_AND_COMPANY-US200805005490

PATIENT
  Age: 46 Year
  Sex: Male
  Weight: 108.84 kg

DRUGS (8)
  1. CYMBALTA [Suspect]
     Indication: DEPRESSION
     Dosage: 60 MG, UNK
  2. AMITRIPTYLINE HCL [Concomitant]
     Dosage: 100 MG, UNK
  3. OXYCODONE HCL [Concomitant]
     Dosage: 15 MG, UNK
  4. CRESTOR [Concomitant]
     Dosage: 20 MG, UNK
  5. METFORMIN HCL [Concomitant]
  6. AVANDIA [Concomitant]
  7. LISINOPRIL [Concomitant]
  8. HYDROCHLOROTHIAZIDE [Concomitant]

REACTIONS (1)
  - DEATH [None]
